FAERS Safety Report 18569061 (Version 3)
Quarter: 2021Q1

REPORT INFORMATION
  Report Type: Spontaneous
  Country: AT (occurrence: AT)
  Receive Date: 20201202
  Receipt Date: 20210323
  Transmission Date: 20210419
  Serious: Yes (Hospitalization, Other)
  Sender: FDA-Public Use
  Company Number: AT-AMGEN-AUTSP2020193304

PATIENT
  Age: 62 Year
  Sex: Female
  Weight: 80 kg

DRUGS (59)
  1. NOVALGIN (METAMIZOLE SODIUM) [Concomitant]
     Active Substance: METAMIZOLE SODIUM
     Indication: RESPIRATORY TRACT INFECTION
     Dosage: UNK
     Dates: start: 20190315
  2. BUPRENORPHIN [Concomitant]
     Active Substance: BUPRENORPHINE
  3. PASPERTIN [METOCLOPRAMIDE HYDROCHLORIDE] [Concomitant]
     Active Substance: METOCLOPRAMIDE HYDROCHLORIDE
     Dosage: UNK
     Dates: start: 20171212
  4. FENISTIL [Concomitant]
     Active Substance: DIMETHINDENE
  5. TRASTUZUMAB. [Suspect]
     Active Substance: TRASTUZUMAB
     Dosage: 480 MILLIGRAM, Q3WK
     Route: 042
     Dates: start: 20180904
  6. LAPATINIB [Suspect]
     Active Substance: LAPATINIB
     Indication: BREAST CANCER METASTATIC
     Dosage: 1000 MILLIGRAM, QD
     Route: 048
     Dates: start: 20181227, end: 20190116
  7. TEMESTA [LORAZEPAM] [Concomitant]
     Active Substance: LORAZEPAM
     Dosage: UNK
     Dates: start: 20190226
  8. LIXIANA [Concomitant]
     Active Substance: EDOXABAN TOSYLATE
     Indication: PULMONARY EMBOLISM
     Dosage: UNK
     Dates: start: 20190315
  9. AUGMENTIN [Concomitant]
     Active Substance: AMOXICILLIN\CLAVULANATE POTASSIUM
     Indication: RESPIRATORY TRACT INFECTION
     Dosage: UNK
     Dates: start: 20190509
  10. CORTISON [Concomitant]
     Active Substance: CORTISONE ACETATE
     Indication: RESPIRATORY TRACT INFECTION
     Dosage: UNK
     Dates: start: 20190615
  11. LASIX [Concomitant]
     Active Substance: FUROSEMIDE
     Dosage: UNK
     Dates: start: 20190907
  12. TRASTUZUMAB. [Suspect]
     Active Substance: TRASTUZUMAB
     Indication: BREAST CANCER METASTATIC
     Dosage: 480 MILLIGRAM, Q3WK
     Route: 042
     Dates: start: 20170306
  13. LAEVOLAC [Concomitant]
     Active Substance: LACTULOSE
     Dosage: UNK
     Dates: start: 20171212
  14. VENLAFAB [Concomitant]
     Active Substance: VENLAFAXINE HYDROCHLORIDE
     Dosage: UNK
     Dates: start: 20190315
  15. EMEND [Concomitant]
     Active Substance: APREPITANT
     Dosage: UNK
     Dates: start: 20180127
  16. KYTRIL [Concomitant]
     Active Substance: GRANISETRON HYDROCHLORIDE
     Dosage: UNK
     Dates: start: 20171212
  17. MEXALEN [Concomitant]
     Active Substance: ACETAMINOPHEN
  18. LAPATINIB DITOSYLATE [Concomitant]
     Active Substance: LAPATINIB DITOSYLATE
     Dosage: 1000 MILLIGRAM
     Route: 048
     Dates: start: 20190116
  19. TRASTUZUMAB. [Suspect]
     Active Substance: TRASTUZUMAB
     Dosage: 480 MILLIGRAM, Q3WK
     Route: 042
     Dates: start: 20181023
  20. NOVALGIN (METAMIZOLE SODIUM) [Concomitant]
     Active Substance: METAMIZOLE SODIUM
     Dosage: UNK
     Dates: start: 20170317
  21. EMEND [Concomitant]
     Active Substance: APREPITANT
     Dosage: UNK
     Dates: start: 20180129
  22. HYDAL [Concomitant]
     Active Substance: HYDROMORPHONE HYDROCHLORIDE
     Indication: BACK PAIN
     Dosage: UNK
     Dates: start: 20180628
  23. LYRICA [Concomitant]
     Active Substance: PREGABALIN
     Indication: BACK PAIN
     Dosage: UNK
     Dates: start: 20181227
  24. MANNIT [MANNITOL] [Concomitant]
  25. VENDAL [MORPHINE SULFATE] [Concomitant]
  26. TRASTUZUMAB. [Suspect]
     Active Substance: TRASTUZUMAB
     Dosage: 480 MILLIGRAM, Q3WK
     Route: 042
     Dates: start: 20171121
  27. CAPECITABINE. [Suspect]
     Active Substance: CAPECITABINE
     Indication: BREAST CANCER METASTATIC
     Dosage: 3500 MILLIGRAM, QD
     Route: 048
     Dates: start: 20180904
  28. TRASTUZUMAB EMTANSINE [Suspect]
     Active Substance: ADO-TRASTUZUMAB EMTANSINE
     Dosage: 3.3 MILLIGRAM/SQ. METER, Q3WK
     Route: 042
     Dates: start: 20180515
  29. CONCOR COR [Concomitant]
     Active Substance: BISOPROLOL FUMARATE
  30. EMEND [Concomitant]
     Active Substance: APREPITANT
     Dosage: UNK
     Dates: start: 20180128
  31. DOXYCYCLIN [DOXYCYCLINE] [Concomitant]
     Active Substance: DOXYCYCLINE
     Indication: RESPIRATORY TRACT INFECTION
     Dosage: UNK
     Dates: start: 20190502
  32. SOLU DACORTIN [Concomitant]
  33. ZYRTEC [Concomitant]
     Active Substance: CETIRIZINE HYDROCHLORIDE
  34. TRASTUZUMAB. [Suspect]
     Active Substance: TRASTUZUMAB
     Dosage: 480 MILLIGRAM, Q3WK
     Route: 042
     Dates: start: 20190527
  35. TRASTUZUMAB EMTANSINE [Suspect]
     Active Substance: ADO-TRASTUZUMAB EMTANSINE
     Indication: BREAST CANCER METASTATIC
     Dosage: 3.6 MILLIGRAM/SQ. METER, Q3WK
     Route: 042
     Dates: start: 20171212
  36. SUCRALFAT [Concomitant]
     Active Substance: SUCRALFATE
     Dosage: UNK
     Dates: start: 20190907
  37. BAMBEC [Concomitant]
     Active Substance: BAMBUTEROL HYDROCHLORIDE
  38. PANTOLOC [PANTOPRAZOLE] [Concomitant]
     Active Substance: PANTOPRAZOLE SODIUM
     Dosage: UNK
     Dates: start: 20170302
  39. PARACODIN [DIHYDROCODEINE] [Concomitant]
     Indication: DYSPNOEA
     Dosage: UNK
     Dates: start: 20190509
  40. TRITTICO [Concomitant]
     Active Substance: TRAZODONE HYDROCHLORIDE
     Dosage: UNK
     Dates: start: 20181215
  41. MORPHINE [Concomitant]
     Active Substance: MORPHINE
  42. LAPATINIB DITOSYLATE [Concomitant]
     Active Substance: LAPATINIB DITOSYLATE
     Dosage: 750 MILLIGRAM
     Route: 048
     Dates: start: 20190116
  43. PERTUZUMAB. [Suspect]
     Active Substance: PERTUZUMAB
     Indication: BREAST CANCER METASTATIC
     Dosage: 420 MILLIGRAM, Q3WK
     Route: 042
     Dates: start: 20170306
  44. NOVALGIN (METAMIZOLE SODIUM) [Concomitant]
     Active Substance: METAMIZOLE SODIUM
     Indication: BACK PAIN
     Dosage: UNK
     Dates: start: 20171212
  45. NOVALGIN (METAMIZOLE SODIUM) [Concomitant]
     Active Substance: METAMIZOLE SODIUM
     Dosage: UNK
     Dates: start: 20170327
  46. KALIORAL [CITRIC ACID;POTASSIUM BICARBONATE;POTASSIUM CITRATE] [Concomitant]
  47. ZOLPIDEM [Concomitant]
     Active Substance: ZOLPIDEM TARTRATE
     Dosage: UNK
     Dates: start: 20190215
  48. TEMGESIC [Concomitant]
     Active Substance: BUPRENORPHINE HYDROCHLORIDE
     Dosage: UNK
     Dates: start: 20190908
  49. DIAMOX SEQUELS [Concomitant]
     Active Substance: ACETAZOLAMIDE
  50. LAPATINIB DITOSYLATE [Concomitant]
     Active Substance: LAPATINIB DITOSYLATE
     Dosage: 1000 MILLIGRAM
     Route: 048
     Dates: start: 20181227
  51. NAVELBINE [Suspect]
     Active Substance: VINORELBINE TARTRATE
     Indication: BREAST CANCER METASTATIC
     Dosage: 50 MILLIGRAM
     Route: 048
     Dates: start: 20170306
  52. LAPATINIB [Suspect]
     Active Substance: LAPATINIB
     Dosage: 750 MILLIGRAM, QD
     Route: 048
     Dates: start: 20190116, end: 20190206
  53. DEXAMETHASON [DEXAMETHASONE] [Concomitant]
     Active Substance: DEXAMETHASONE
     Dosage: UNK
     Dates: start: 20170829
  54. NOVALGIN (METAMIZOLE SODIUM) [Concomitant]
     Active Substance: METAMIZOLE SODIUM
     Indication: HEPATIC PAIN
     Dosage: UNK
     Dates: start: 20190509
  55. DAFLON [DIOSMIN;HESPERIDIN] [Concomitant]
     Active Substance: DIOSMIN\HESPERIDIN
     Dosage: UNK
     Dates: start: 20190907
  56. FORTECORTIN [DEXAMETHASONE] [Concomitant]
     Active Substance: DEXAMETHASONE
     Dosage: UNK
     Dates: start: 20190215
  57. MIRTAZAPIN [Concomitant]
     Active Substance: MIRTAZAPINE
     Dosage: UNK
     Dates: start: 20190315
  58. HYDAL [Concomitant]
     Active Substance: HYDROMORPHONE HYDROCHLORIDE
     Dosage: UNK
     Dates: start: 20181227
  59. ULSAL [Concomitant]
     Active Substance: RANITIDINE HYDROCHLORIDE

REACTIONS (10)
  - Blindness [Recovered/Resolved with Sequelae]
  - Vomiting [Not Recovered/Not Resolved]
  - Vertigo [Recovered/Resolved]
  - Headache [Recovered/Resolved]
  - Polyneuropathy [Recovered/Resolved]
  - Headache [Not Recovered/Not Resolved]
  - Off label use [Unknown]
  - Vertigo [Not Recovered/Not Resolved]
  - Polyneuropathy [Not Recovered/Not Resolved]
  - Angina pectoris [Recovered/Resolved]

NARRATIVE: CASE EVENT DATE: 20180904
